FAERS Safety Report 8398487-5 (Version None)
Quarter: 2012Q2

REPORT INFORMATION
  Report Type: 
  Country: None (occurrence: None)
  Receive Date: 20120531
  Receipt Date: 20120522
  Transmission Date: 20120825
  Serious: Yes (Other)
  Sender: FDA-Public Use
  Company Number: CA-ROCHE-1025340

PATIENT
  Sex: Male

DRUGS (6)
  1. SYMBICORT [Concomitant]
  2. ALVESCO [Concomitant]
  3. SINGULAIR [Concomitant]
  4. NASONEX [Concomitant]
  5. XOLAIR [Suspect]
     Indication: ASTHMA
     Route: 058
     Dates: start: 20101027
  6. NEXIUM [Concomitant]

REACTIONS (9)
  - THROAT IRRITATION [None]
  - NASOPHARYNGITIS [None]
  - NASAL CONGESTION [None]
  - SINUS CONGESTION [None]
  - EAR DISORDER [None]
  - PHARYNGEAL OEDEMA [None]
  - VIRAL INFECTION [None]
  - BODY TEMPERATURE DECREASED [None]
  - WHEEZING [None]
